FAERS Safety Report 12376764 (Version 2)
Quarter: 2016Q2

REPORT INFORMATION
  Report Type: Spontaneous
  Country: US (occurrence: US)
  Receive Date: 20160517
  Receipt Date: 20160517
  Transmission Date: 20160815
  Serious: No
  Sender: FDA-Public Use
  Company Number: US-MALLINCKRODT-T201502921

PATIENT
  Sex: Female

DRUGS (8)
  1. LEVOTHYROXINE. [Concomitant]
     Active Substance: LEVOTHYROXINE
     Indication: HYPOTHYROIDISM
     Dosage: 1 DF (TABLET), QD IN AM
  2. PLAVIX [Concomitant]
     Active Substance: CLOPIDOGREL BISULFATE
     Dosage: DAILY
  3. FUROSEMIDE. [Concomitant]
     Active Substance: FUROSEMIDE
  4. ARAVA [Concomitant]
     Active Substance: LEFLUNOMIDE
     Indication: RHEUMATOID ARTHRITIS
     Dosage: 1 DF (TABLET), QD
  5. H.P. ACTHAR [Suspect]
     Active Substance: CORTICOTROPIN
     Indication: PROTEINURIA
     Dosage: 40 UNITS, TWICE WKLY X1 MONTH
     Route: 058
     Dates: start: 20150408, end: 201505
  6. H.P. ACTHAR [Suspect]
     Active Substance: CORTICOTROPIN
     Indication: NEPHROTIC SYNDROME
     Dosage: 80 UNITS EVERY 4 DAYS
     Route: 058
     Dates: start: 201505
  7. SIMVASTATIN. [Concomitant]
     Active Substance: SIMVASTATIN
     Indication: BLOOD CHOLESTEROL INCREASED
     Dosage: 1 DF (TABLET), QD
  8. VICODIN [Concomitant]
     Active Substance: ACETAMINOPHEN\HYDROCODONE BITARTRATE
     Indication: ARTHRALGIA
     Dosage: 1 TABLET IN AM AND PM

REACTIONS (7)
  - Dysphagia [Not Recovered/Not Resolved]
  - Feeling abnormal [Unknown]
  - Spinal pain [Unknown]
  - Swelling face [Not Recovered/Not Resolved]
  - Muscular weakness [Unknown]
  - Weight increased [Not Recovered/Not Resolved]
  - Myalgia [Unknown]
